FAERS Safety Report 14831724 (Version 1)
Quarter: 2018Q2

REPORT INFORMATION
  Report Type: Spontaneous
  Country: DE (occurrence: DE)
  Receive Date: 20180501
  Receipt Date: 20180501
  Transmission Date: 20180711
  Serious: Yes (Hospitalization)
  Sender: FDA-Public Use
  Company Number: DE-ACCORD-066263

PATIENT
  Age: 92 Year
  Sex: Female

DRUGS (12)
  1. METOPROLOL. [Interacting]
     Active Substance: METOPROLOL
     Indication: PRODUCT USED FOR UNKNOWN INDICATION
     Route: 048
     Dates: end: 20170305
  2. HALDOL [Interacting]
     Active Substance: HALOPERIDOL
     Indication: DEMENTIA
     Dates: start: 20170301, end: 20170301
  3. RISPERDAL [Interacting]
     Active Substance: RISPERIDONE
     Indication: DELIRIUM
     Route: 048
     Dates: start: 20170303, end: 20170305
  4. HYDROCHLOROTHIAZIDE. [Interacting]
     Active Substance: HYDROCHLOROTHIAZIDE
     Indication: PRODUCT USED FOR UNKNOWN INDICATION
     Route: 048
     Dates: end: 20170305
  5. LEVEMIR [Concomitant]
     Active Substance: INSULIN DETEMIR
     Route: 058
     Dates: end: 20170305
  6. ACETYLSALICYLIC ACID [Concomitant]
     Active Substance: ASPIRIN
     Route: 048
     Dates: start: 2014, end: 20170305
  7. PIPAMPERONE [Concomitant]
     Active Substance: PIPAMPERONE
     Indication: RESTLESSNESS
     Dosage: IN EVENING
     Route: 048
     Dates: start: 20170302, end: 20170303
  8. AMLODIPINE [Suspect]
     Active Substance: AMLODIPINE BESYLATE
     Indication: PRODUCT USED FOR UNKNOWN INDICATION
     Route: 048
     Dates: end: 20170305
  9. DOMINAL (PROTHIPENDYL HYDROCHLORIDE) [Interacting]
     Active Substance: PROTHIPENDYL HYDROCHLORIDE
     Indication: PRODUCT USED FOR UNKNOWN INDICATION
     Route: 048
     Dates: start: 20170214, end: 20170305
  10. ACTRAPID [Concomitant]
     Active Substance: INSULIN HUMAN
     Route: 058
     Dates: end: 20170305
  11. RAMIPRIL. [Interacting]
     Active Substance: RAMIPRIL
     Indication: PRODUCT USED FOR UNKNOWN INDICATION
     Route: 048
     Dates: start: 20170305
  12. ATORVASTATIN [Concomitant]
     Active Substance: ATORVASTATIN
     Route: 048
     Dates: start: 2014, end: 20170305

REACTIONS (6)
  - Cardiogenic shock [Unknown]
  - Acute myocardial infarction [Unknown]
  - Altered state of consciousness [Unknown]
  - Drug interaction [Unknown]
  - Bradycardia [Unknown]
  - Hypotension [Unknown]

NARRATIVE: CASE EVENT DATE: 201703
